FAERS Safety Report 6881889-3 (Version None)
Quarter: 2010Q3

REPORT INFORMATION
  Report Type: 
  Country: None (occurrence: None)
  Receive Date: 20100727
  Receipt Date: 20100727
  Transmission Date: 20110219
  Serious: Yes (Other)
  Sender: FDA-Public Use
  Company Number: None

PATIENT
  Age: 62 Year
  Sex: Female
  Weight: 56.6996 kg

DRUGS (4)
  1. TYLENOL (CAPLET) [Suspect]
     Indication: ORAL SURGERY
     Dosage: 1X/DAY SPORATICALLY PO
     Route: 048
     Dates: start: 20090101, end: 20090529
  2. TYLENOL (CAPLET) [Suspect]
     Indication: SINUS HEADACHE
     Dosage: 1X/DAY SPORATICALLY PO
     Route: 048
     Dates: start: 20090101, end: 20090529
  3. TYLENOL (CAPLET) [Suspect]
     Indication: ORAL SURGERY
     Dosage: 1X/DAY SPORATICALLY PO
     Route: 048
     Dates: start: 20100719, end: 20100719
  4. TYLENOL (CAPLET) [Suspect]
     Indication: SINUS HEADACHE
     Dosage: 1X/DAY SPORATICALLY PO
     Route: 048
     Dates: start: 20100719, end: 20100719

REACTIONS (3)
  - BLADDER DISORDER [None]
  - PRODUCT CONTAMINATION MICROBIAL [None]
  - PRODUCT QUALITY ISSUE [None]
